FAERS Safety Report 16626281 (Version 1)
Quarter: 2019Q3

REPORT INFORMATION
  Report Type: Spontaneous
  Country: US (occurrence: US)
  Receive Date: 20190724
  Receipt Date: 20190724
  Transmission Date: 20191004
  Serious: Yes (Life-Threatening)
  Sender: FDA-Public Use
  Company Number: US-ASTRAZENECA-2019SF04346

PATIENT
  Sex: Female

DRUGS (3)
  1. HUMIRA [Suspect]
     Active Substance: ADALIMUMAB
     Indication: PSORIATIC ARTHROPATHY
     Dosage: ONCE IN TWO WEEKS
     Route: 058
     Dates: start: 201812, end: 20190206
  2. SEROQUEL [Suspect]
     Active Substance: QUETIAPINE FUMARATE
     Route: 048
  3. XELJANZ [Suspect]
     Active Substance: TOFACITINIB CITRATE
     Dosage: PILL FORM
     Route: 065
     Dates: start: 20190528

REACTIONS (11)
  - Suicidal ideation [Unknown]
  - Psoriasis [Unknown]
  - Restlessness [Unknown]
  - Eczema [Unknown]
  - Depression [Unknown]
  - Drug ineffective [Unknown]
  - Mental impairment [Unknown]
  - Fatigue [Unknown]
  - Decreased interest [Unknown]
  - Spinal pain [Unknown]
  - Irritability [Unknown]
